FAERS Safety Report 9643068 (Version 5)
Quarter: 2013Q4

REPORT INFORMATION
  Report Type: Spontaneous
  Country: DE (occurrence: DE)
  Receive Date: 20131024
  Receipt Date: 20131223
  Transmission Date: 20140711
  Serious: Yes (Other)
  Sender: FDA-Public Use
  Company Number: DE-AMGEN-DEUSP2013068837

PATIENT
  Age: 60 Year
  Sex: Female

DRUGS (2)
  1. PROLIA [Suspect]
     Indication: OSTEOPOROSIS POSTMENOPAUSAL
     Dosage: 1 DF, ONE TIME DOSE
     Route: 058
     Dates: start: 20130924
  2. VIGANTOL                           /00318501/ [Concomitant]
     Indication: OSTEOPOROSIS
     Dosage: 1000 IU, UNK
     Route: 048
     Dates: start: 200912

REACTIONS (4)
  - Hypertensive crisis [Unknown]
  - Hyperventilation [Unknown]
  - Circulatory collapse [Recovered/Resolved]
  - Nausea [Unknown]
